FAERS Safety Report 5709832-0 (Version None)
Quarter: 2008Q2

REPORT INFORMATION
  Report Type: 
  Country: None (occurrence: None)
  Receive Date: 20080418
  Receipt Date: 20070514
  Transmission Date: 20081010
  Serious: No
  Sender: FDA-Public Use
  Company Number: US-ASTRAZENECA-2006UW03899

PATIENT
  Age: 76 Year
  Sex: Female
  Weight: 69.4 kg

DRUGS (3)
  1. TOPROL-XL [Suspect]
     Indication: HYPERTENSION
     Route: 048
     Dates: start: 20030513
  2. LEVOXYL [Concomitant]
  3. DIOVAN [Concomitant]

REACTIONS (3)
  - ALOPECIA [None]
  - DRY EYE [None]
  - DRY SKIN [None]
